FAERS Safety Report 8221498-7 (Version None)
Quarter: 2012Q1

REPORT INFORMATION
  Report Type: 
  Country: None (occurrence: None)
  Receive Date: 20120320
  Receipt Date: 20120312
  Transmission Date: 20120608
  Serious: Yes (Other)
  Sender: FDA-Public Use
  Company Number: PHHY2012ES021344

PATIENT
  Age: 22 Year
  Sex: Male

DRUGS (1)
  1. AMOXICILLIN [Suspect]
     Indication: PHARYNGOTONSILLITIS
     Dosage: UNK
     Dates: start: 20090101

REACTIONS (5)
  - ARTHRALGIA [None]
  - ABDOMINAL PAIN [None]
  - HENOCH-SCHONLEIN PURPURA [None]
  - ARTHRITIS [None]
  - PALPABLE PURPURA [None]
